FAERS Safety Report 15152160 (Version 1)
Quarter: 2018Q3

REPORT INFORMATION
  Report Type: Spontaneous
  Country: US (occurrence: US)
  Receive Date: 20180717
  Receipt Date: 20180717
  Transmission Date: 20181010
  Serious: No
  Sender: FDA-Public Use
  Company Number: US-ELI_LILLY_AND_COMPANY-US201806012950

PATIENT
  Age: 65 Year
  Sex: Male

DRUGS (1)
  1. BASAGLAR [Suspect]
     Active Substance: INSULIN GLARGINE
     Indication: DIABETES MELLITUS
     Dosage: 28 U, DAILY
     Route: 058
     Dates: start: 20180623

REACTIONS (2)
  - Blood glucose increased [Recovering/Resolving]
  - Accidental underdose [Recovering/Resolving]

NARRATIVE: CASE EVENT DATE: 201806
